FAERS Safety Report 7714706-X (Version None)
Quarter: 2011Q3

REPORT INFORMATION
  Report Type: 
  Country: None (occurrence: None)
  Receive Date: 20110829
  Receipt Date: 20110822
  Transmission Date: 20111222
  Serious: Yes (Other)
  Sender: FDA-Public Use
  Company Number: US-JNJFOC-20110711709

PATIENT
  Sex: Male

DRUGS (3)
  1. SIMETHICONE [Concomitant]
     Indication: FLATULENCE
     Route: 065
  2. RANITIDINE [Concomitant]
     Indication: DYSPEPSIA
     Route: 065
  3. LEVAQUIN [Suspect]
     Indication: PRODUCT USED FOR UNKNOWN INDICATION
     Route: 048
     Dates: start: 20090603, end: 20090912

REACTIONS (2)
  - ROTATOR CUFF SYNDROME [None]
  - TENDON RUPTURE [None]
